FAERS Safety Report 4673280-5 (Version None)
Quarter: 2005Q2

REPORT INFORMATION
  Report Type: 
  Country: None (occurrence: None)
  Receive Date: 20050524
  Receipt Date: 20050524
  Transmission Date: 20051028
  Serious: Yes (Life-Threatening)
  Sender: FDA-Public Use
  Company Number: None

PATIENT
  Age: 49 Year
  Sex: Male
  Weight: 85.2762 kg

DRUGS (9)
  1. DOFETILIDE 250 MCG CAPSULES [Suspect]
     Indication: ATRIAL FIBRILLATION
     Dosage: 250 MCG, BID, ORAL
     Route: 048
     Dates: start: 20050216, end: 20050217
  2. WARFARIN SODIUM [Concomitant]
  3. METOPROLOL [Concomitant]
  4. MAG OXIDE [Concomitant]
  5. SPIRONOLACTONE [Concomitant]
  6. LISINOPRIL [Concomitant]
  7. OMEPRAZOLE [Concomitant]
  8. DIGOXIN [Concomitant]
  9. ATORVASTATIN [Concomitant]

REACTIONS (2)
  - DIZZINESS [None]
  - VENTRICULAR TACHYCARDIA [None]
